FAERS Safety Report 20782014 (Version 2)
Quarter: 2022Q4

REPORT INFORMATION
  Report Type: Spontaneous
  Country: CA (occurrence: None)
  Receive Date: 20220504
  Receipt Date: 20221229
  Transmission Date: 20230112
  Serious: Yes (Other)
  Sender: FDA-Public Use
  Company Number: CA-PFIZER INC-202200634807

PATIENT
  Age: 71 Year
  Sex: Male

DRUGS (4)
  1. METHOTREXATE [Suspect]
     Active Substance: METHOTREXATE
     Indication: Rheumatoid arthritis
     Route: 065
     Dates: start: 2015
  2. PREDNISONE [Concomitant]
     Active Substance: PREDNISONE
     Route: 065
     Dates: start: 202203
  3. RUXIENCE [Concomitant]
     Active Substance: RITUXIMAB-PVVR
     Indication: Rheumatoid arthritis
     Dosage: DAY 1 AND 15
     Route: 042
     Dates: start: 20220607, end: 20220621
  4. RUXIENCE [Concomitant]
     Active Substance: RITUXIMAB-PVVR
     Dosage: DAY 1 AND 15
     Route: 042
     Dates: start: 20220621

REACTIONS (5)
  - Cardiomyopathy [Unknown]
  - Aneurysm [Not Recovered/Not Resolved]
  - Chronic obstructive pulmonary disease [Unknown]
  - Fibrosis [Unknown]
  - COVID-19 [Unknown]
